FAERS Safety Report 12884813 (Version 3)
Quarter: 2017Q3

REPORT INFORMATION
  Report Type: Report from Study
  Country: US (occurrence: US)
  Receive Date: 20161026
  Receipt Date: 20170927
  Transmission Date: 20171127
  Serious: Yes (Hospitalization, Other)
  Sender: FDA-Public Use
  Company Number: US-ROCHE-1843936

PATIENT
  Age: 76 Year
  Sex: Male
  Weight: 53.7 kg

DRUGS (12)
  1. BEVACIZUMAB. [Suspect]
     Active Substance: BEVACIZUMAB
     Dosage: STRENGTH- 25 MG/ML?CYCLE 22 DAY 1
     Route: 042
     Dates: start: 20161005
  2. CALCIUM CARBONATE. [Concomitant]
     Active Substance: CALCIUM CARBONATE
     Route: 065
     Dates: start: 20160907
  3. BEVACIZUMAB. [Suspect]
     Active Substance: BEVACIZUMAB
     Indication: PANCREATIC NEUROENDOCRINE TUMOUR METASTATIC
     Dosage: STRENGTH- 25 MG/ML?CYCLE 22 DAY 1?DAY 1 AND 15
     Route: 042
     Dates: start: 20141203, end: 20161005
  4. GLARGINE [Concomitant]
     Route: 065
     Dates: start: 20160721
  5. AMLODIPIN [Concomitant]
     Active Substance: AMLODIPINE BESYLATE
     Route: 065
     Dates: start: 20160725
  6. MEGESTROL [Concomitant]
     Active Substance: MEGESTROL
     Route: 065
     Dates: start: 20160427
  7. LISINOPRIL. [Concomitant]
     Active Substance: LISINOPRIL
     Route: 065
     Dates: start: 20160427
  8. CAPECITABINE. [Suspect]
     Active Substance: CAPECITABINE
     Indication: PANCREATIC NEUROENDOCRINE TUMOUR METASTATIC
     Dosage: PATIENT DID NOT RECEIVE CAPECITABINE SINCE 19/AUG/2015 (CYCLE 9)
     Route: 065
     Dates: end: 20150819
  9. BRINZOLAMIDE [Concomitant]
     Active Substance: BRINZOLAMIDE
  10. CLONAZEPAM. [Concomitant]
     Active Substance: CLONAZEPAM
  11. DORZOLAMIDE [Concomitant]
     Active Substance: DORZOLAMIDE
  12. LISPRO INSULIN [Concomitant]
     Active Substance: INSULIN LISPRO

REACTIONS (7)
  - Hypertension [Not Recovered/Not Resolved]
  - Upper gastrointestinal haemorrhage [Unknown]
  - Hyperglycaemia [Not Recovered/Not Resolved]
  - Faeces discoloured [Unknown]
  - Discomfort [Unknown]
  - Hypoglycaemia [Recovered/Resolved]
  - Hyperglycaemia [Recovered/Resolved]

NARRATIVE: CASE EVENT DATE: 20150107
